FAERS Safety Report 9684686 (Version 1)
Quarter: 2013Q4

REPORT INFORMATION
  Report Type: Spontaneous
  Country: US (occurrence: None)
  Receive Date: 20131108
  Receipt Date: 20131108
  Transmission Date: 20140711
  Serious: Yes (Disabling, Other)
  Sender: FDA-Public Use
  Company Number: ACO_39282_2013

PATIENT
  Sex: Male
  Weight: 72.6 kg

DRUGS (8)
  1. AMPYRA [Suspect]
     Indication: GAIT DISTURBANCE
     Route: 048
     Dates: start: 201003
  2. AMPYRA [Suspect]
     Indication: MULTIPLE SCLEROSIS
     Route: 048
     Dates: start: 201003
  3. DEXILANT (DEXLANSOPRAZOLE) [Concomitant]
  4. FLOMAX (TAMSULOSIN HYDROCHLORIDE) [Concomitant]
  5. PROZAC (FLUOXETINE HYDROCHLORIDE) [Concomitant]
  6. VITAMIN C [Concomitant]
  7. CRANBERRY (CRANBERRY) [Concomitant]
  8. VESICARE (SOLIFENACIN SUCCINATE) [Concomitant]

REACTIONS (10)
  - Hypersomnia [None]
  - Activities of daily living impaired [None]
  - General physical health deterioration [None]
  - Multiple sclerosis [None]
  - Vitamin D decreased [None]
  - Musculoskeletal stiffness [None]
  - Urinary retention [None]
  - Urinary tract infection [None]
  - Incorrect dose administered [None]
  - Drug dose omission [None]
